FAERS Safety Report 19735947 (Version 1)
Quarter: 2021Q3

REPORT INFORMATION
  Report Type: Other
  Country: CN (occurrence: CN)
  Receive Date: 20210823
  Receipt Date: 20210823
  Transmission Date: 20211014
  Serious: Yes (Death)
  Sender: FDA-Public Use
  Company Number: CN-ROCHE-1901309

PATIENT
  Age: 37 Year
  Sex: Female
  Weight: 55 kg

DRUGS (2)
  1. AVASTIN [Suspect]
     Active Substance: BEVACIZUMAB
     Route: 041
     Dates: start: 20171214, end: 20210204
  2. AVASTIN [Suspect]
     Active Substance: BEVACIZUMAB
     Indication: NON-SMALL CELL LUNG CANCER
     Route: 041
     Dates: start: 20161115

REACTIONS (4)
  - Respiratory failure [Fatal]
  - General physical health deterioration [Unknown]
  - Haemoptysis [Unknown]
  - Weight decreased [Unknown]

NARRATIVE: CASE EVENT DATE: 20190306
